FAERS Safety Report 17908842 (Version 1)
Quarter: 2020Q2

REPORT INFORMATION
  Report Type: Other
  Country: US (occurrence: US)
  Receive Date: 20200617
  Receipt Date: 20200617
  Transmission Date: 20200714
  Serious: Yes (Hospitalization, Other)
  Sender: FDA-Public Use
  Company Number: US-AVONDALE PHARMACEUTICALS, LLC-2086038

PATIENT
  Sex: Female

DRUGS (2)
  1. MOBIC [Suspect]
     Active Substance: MELOXICAM
     Indication: PAIN
     Route: 065
  2. ASPIRIN. [Interacting]
     Active Substance: ASPIRIN
     Route: 065

REACTIONS (2)
  - Pulmonary embolism [Unknown]
  - Labelled drug-drug interaction medication error [Unknown]
